APPROVED DRUG PRODUCT: TRISORALEN
Active Ingredient: TRIOXSALEN
Strength: 5MG
Dosage Form/Route: TABLET;ORAL
Application: N012697 | Product #001
Applicant: VALEANT PHARMACEUTICALS INTERNATIONAL
Approved: Approved Prior to Jan 1, 1982 | RLD: No | RS: No | Type: DISCN